FAERS Safety Report 20980359 (Version 1)
Quarter: 2022Q2

REPORT INFORMATION
  Report Type: Spontaneous
  Country: NL (occurrence: NL)
  Receive Date: 20220620
  Receipt Date: 20220620
  Transmission Date: 20220721
  Serious: Yes (Other)
  Sender: FDA-Public Use
  Company Number: NL-SAMSUNG BIOEPIS-SB-2022-14159

PATIENT
  Age: 41 Year
  Sex: Female

DRUGS (4)
  1. REMICADE [Suspect]
     Active Substance: INFLIXIMAB
     Indication: Pyoderma gangrenosum
     Route: 041
  2. REMICADE [Suspect]
     Active Substance: INFLIXIMAB
     Indication: Colitis ulcerative
     Route: 041
  3. TRETINOIN [Concomitant]
     Active Substance: TRETINOIN
     Indication: Pyoderma gangrenosum
     Dosage: UNKNOWN, EVERY OTHER NIGHT
     Route: 065
  4. AZATHIOPRINE [Concomitant]
     Active Substance: AZATHIOPRINE
     Indication: Pyoderma gangrenosum
     Route: 065

REACTIONS (2)
  - Removal of inert matter from skin or subcutaneous tissue [Unknown]
  - Off label use [Unknown]
